FAERS Safety Report 8839295 (Version 1)
Quarter: 2012Q4

REPORT INFORMATION
  Report Type: Spontaneous
  Country: US (occurrence: None)
  Receive Date: 20121011
  Receipt Date: 20121011
  Transmission Date: 20130627
  Serious: No
  Sender: FDA-Public Use
  Company Number: None

PATIENT
  Age: 11 Year
  Sex: Male
  Weight: 31.75 kg

DRUGS (1)
  1. METHYLPHENIDATE [Suspect]
     Indication: ADHD
     Route: 048
     Dates: start: 20120109

REACTIONS (1)
  - Drug effect decreased [None]
